FAERS Safety Report 7003241-2 (Version None)
Quarter: 2010Q3

REPORT INFORMATION
  Report Type: 
  Country: None (occurrence: None)
  Receive Date: 20100916
  Receipt Date: 20100907
  Transmission Date: 20110219
  Serious: No
  Sender: FDA-Public Use
  Company Number: US-1183180

PATIENT
  Age: 78 Year
  Sex: Female
  Weight: 56.246 kg

DRUGS (1)
  1. TRAVATAN [Suspect]
     Indication: GLAUCOMA
     Dosage: (1 GTT QD OU OPHTHALMIC)
     Route: 047
     Dates: start: 20100201

REACTIONS (6)
  - DRY EYE [None]
  - ENTROPION [None]
  - EYE IRRITATION [None]
  - FOREIGN BODY SENSATION IN EYES [None]
  - GROWTH OF EYELASHES [None]
  - TRICHIASIS [None]
